FAERS Safety Report 17782781 (Version 2)
Quarter: 2020Q2

REPORT INFORMATION
  Report Type: Spontaneous
  Country: DK (occurrence: DK)
  Receive Date: 20200513
  Receipt Date: 20200626
  Transmission Date: 20200714
  Serious: Yes (Hospitalization)
  Sender: FDA-Public Use
  Company Number: DK-MYLANLABS-2020M1045962

PATIENT
  Age: 75 Year
  Sex: Female

DRUGS (24)
  1. METOPROLOL. [Suspect]
     Active Substance: METOPROLOL
     Indication: HYPERTENSION
     Dosage: STYRKE: 100 MG/ 100 MG, 1X/DAY
     Route: 048
     Dates: start: 20200326, end: 20200408
  2. VENTOLINE                          /00139502/ [Concomitant]
     Active Substance: ALBUTEROL SULFATE
     Indication: BRONCHOSPASM
     Dosage: STYRKE: 0,1MG/DOSIS
     Route: 055
     Dates: start: 20200407
  3. OXYCODON ACTAVIS [Concomitant]
     Active Substance: OXYCODONE
     Indication: PAIN
     Dosage: 5 MILLIGRAM, PRN (STYRKE: 5MG)/ 5.0MG INTERMITTENT
     Route: 048
  4. BALANCID NOVUM [Concomitant]
     Indication: GASTROOESOPHAGEAL REFLUX DISEASE
     Dosage: STYRKE: 449MG+104MG/ 1 DF INTERMITTENT
     Route: 048
     Dates: start: 20200326
  5. FURIX [Concomitant]
     Indication: DIURETIC THERAPY
     Dosage: DOSE: 2 TABLETS MORNING AND 1 TABLET AT NOON
     Route: 048
     Dates: start: 20170603
  6. GABAPENTIN. [Concomitant]
     Active Substance: GABAPENTIN
     Indication: NEURALGIA
     Dosage: STYRKE: 300MG
     Route: 048
     Dates: start: 20180228
  7. ATENOLOL. [Suspect]
     Active Substance: ATENOLOL
     Dosage: 50 MG, 1X/DAY
     Route: 048
     Dates: start: 20200408
  8. BETNOVAT                           /00008501/ [Concomitant]
     Indication: ECZEMA
     Dosage: STYRKE: 1MG/G
     Route: 003
     Dates: start: 20171127
  9. KALEORID [Concomitant]
     Active Substance: POTASSIUM CHLORIDE
     Indication: MINERAL SUPPLEMENTATION
     Dosage: STYRKE 750 MG
     Route: 048
     Dates: start: 20180222
  10. COMBIVENT [Concomitant]
     Active Substance: ALBUTEROL SULFATE\IPRATROPIUM BROMIDE
     Indication: BRONCHOSPASM
     Dosage: STYRKE: 2,5+0,5MG/BEHOLD/ STRENGTH: 2.5+0.5 MG/CONTAINER, 2.5 ML INTERMITTENT
     Route: 055
     Dates: start: 20200329
  11. CIRCADIN [Concomitant]
     Active Substance: MELATONIN
     Indication: INSOMNIA
     Dosage: STYRKE: 2MG/ 4 MG, 1X/DAY
     Route: 048
     Dates: start: 20181114
  12. TOILAX [Concomitant]
     Active Substance: BISACODYL
     Indication: CONSTIPATION
     Dosage: STYRKE: 5MG
     Route: 048
     Dates: start: 20170602
  13. GANGIDEN [Concomitant]
     Indication: CONSTIPATION
     Dosage: STYRKE: UKENDT
     Route: 048
     Dates: start: 20180325
  14. ATENOLOL. [Suspect]
     Active Substance: ATENOLOL
     Indication: HYPERTENSION
     Dosage: STYRKE: 50 MG
     Route: 048
     Dates: start: 201709, end: 20200325
  15. MOVICOL [Concomitant]
     Active Substance: POLYETHYLENE GLYCOL 3350\POTASSIUM CHLORIDE\SODIUM BICARBONATE\SODIUM CHLORIDE
     Indication: CONSTIPATION
     Dosage: STYRKE: UKENDT/1.0DF INTERMITTENT
     Route: 048
     Dates: start: 20170602
  16. METOCLOPRAMIDE. [Concomitant]
     Active Substance: METOCLOPRAMIDE
     Indication: NAUSEA
     Dosage: STYRKE: 10MG
     Route: 048
     Dates: start: 20180302
  17. PANTOPRAZOLE [Concomitant]
     Active Substance: PANTOPRAZOLE
     Indication: PROPHYLAXIS AGAINST GASTROINTESTINAL ULCER
     Dosage: STYRKE: 20MG
     Route: 048
     Dates: start: 20170603
  18. DULOXETINE. [Concomitant]
     Active Substance: DULOXETINE
     Indication: DEPRESSION
     Dosage: STYRKE: 30MG
     Route: 048
     Dates: start: 20190826
  19. LOSARTAN. [Suspect]
     Active Substance: LOSARTAN
     Dosage: 100 MG, 1X/DAY
     Route: 048
     Dates: start: 20200408
  20. PANODIL [Concomitant]
     Active Substance: ACETAMINOPHEN
     Indication: PAIN
     Dosage: DOSIS:  VARIERENDE STYRKE: 500MG/ DOSE: VARYING
     Route: 048
     Dates: start: 20180302
  21. ELIQUIS [Concomitant]
     Active Substance: APIXABAN
     Indication: THROMBOSIS PROPHYLAXIS
     Dosage: STYRKE: 2,5MG
     Route: 048
     Dates: start: 20200327
  22. OXYCONTIN [Concomitant]
     Active Substance: OXYCODONE HYDROCHLORIDE
     Indication: PAIN
     Dosage: STRENGTH 10MG TO MAR-2020 THEN 5MG
     Route: 048
     Dates: start: 20170602
  23. LOSARTAN. [Suspect]
     Active Substance: LOSARTAN
     Indication: HYPERTENSION
     Dosage: STYRKE: 100 MG
     Route: 048
     Dates: start: 2009, end: 20200406
  24. NORVASC [Concomitant]
     Active Substance: AMLODIPINE BESYLATE
     Indication: HYPERTENSION
     Dosage: STYRKE: 5MG
     Route: 048
     Dates: start: 20180305

REACTIONS (2)
  - Dizziness [Recovering/Resolving]
  - Fall [Unknown]

NARRATIVE: CASE EVENT DATE: 2017
